FAERS Safety Report 16635424 (Version 1)
Quarter: 2019Q3

REPORT INFORMATION
  Report Type: Spontaneous
  Country: PL (occurrence: PL)
  Receive Date: 20190726
  Receipt Date: 20190726
  Transmission Date: 20191004
  Serious: Yes (Other)
  Sender: FDA-Public Use
  Company Number: PL-ACCORD-149126

PATIENT
  Age: 64 Year
  Sex: Female
  Weight: 72 kg

DRUGS (1)
  1. PACLITAXEL ACCORD [Suspect]
     Active Substance: PACLITAXEL
     Indication: CERVIX CARCINOMA
     Route: 042
     Dates: start: 20190116, end: 20190116

REACTIONS (3)
  - Viral infection [Recovering/Resolving]
  - Off label use [Unknown]
  - Necrosis [Recovering/Resolving]

NARRATIVE: CASE EVENT DATE: 20190206
